FAERS Safety Report 4891859-2 (Version None)
Quarter: 2006Q1

REPORT INFORMATION
  Report Type: 
  Country: None (occurrence: None)
  Receive Date: 20060126
  Receipt Date: 20050906
  Transmission Date: 20060701
  Serious: Yes (Other)
  Sender: FDA-Public Use
  Company Number: 2005UW13162

PATIENT
  Age: 66 Year
  Sex: Male

DRUGS (9)
  1. CRESTOR [Suspect]
     Indication: BLOOD CHOLESTEROL INCREASED
     Dates: start: 20030901, end: 20050501
  2. COLACE [Concomitant]
  3. ASPIRIN [Concomitant]
  4. LISINOPRIL [Concomitant]
  5. VIAGRA [Concomitant]
  6. VITAMIN A [Concomitant]
  7. VITAMIN D [Concomitant]
  8. DEMEROL [Concomitant]
  9. PROSTATE FORMULA [Concomitant]
     Dates: end: 20030101

REACTIONS (9)
  - ALANINE AMINOTRANSFERASE INCREASED [None]
  - ASPARTATE AMINOTRANSFERASE INCREASED [None]
  - BLOOD ALKALINE PHOSPHATASE INCREASED [None]
  - BLOOD LACTATE DEHYDROGENASE INCREASED [None]
  - BLOOD PRESSURE DECREASED [None]
  - GAMMA-GLUTAMYLTRANSFERASE ABNORMAL [None]
  - HEADACHE [None]
  - MALAISE [None]
  - RASH MACULO-PAPULAR [None]
